FAERS Safety Report 25002239 (Version 3)
Quarter: 2025Q2

REPORT INFORMATION
  Report Type: Spontaneous
  Country: BR (occurrence: BR)
  Receive Date: 20250224
  Receipt Date: 20250425
  Transmission Date: 20250716
  Serious: Yes (Death, Hospitalization)
  Sender: BEIGENE
  Company Number: BR-BEIGENE-BGN-2025-002674

PATIENT

DRUGS (3)
  1. BRUKINSA [Suspect]
     Active Substance: ZANUBRUTINIB
     Indication: Marginal zone lymphoma
     Dosage: 80 MILLIGRAM, BID
     Route: 065
  2. BRUKINSA [Suspect]
     Active Substance: ZANUBRUTINIB
  3. BRUKINSA [Suspect]
     Active Substance: ZANUBRUTINIB
     Dosage: 80 MILLIGRAM, BID

REACTIONS (4)
  - Systemic infection [Fatal]
  - Hepatic cirrhosis [Fatal]
  - Ascites [Unknown]
  - Incarcerated umbilical hernia [Not Recovered/Not Resolved]
